FAERS Safety Report 9524193 (Version 1)
Quarter: 2013Q3

REPORT INFORMATION
  Report Type: Spontaneous
  Country: US (occurrence: None)
  Receive Date: 20130912
  Receipt Date: 20130912
  Transmission Date: 20140515
  Serious: Yes (Death)
  Sender: FDA-Public Use
  Company Number: 1713747-2013-99947

PATIENT
  Sex: Male

DRUGS (3)
  1. DEXTROSE [Suspect]
  2. LIBERTY CYCLER [Concomitant]
  3. LIBERTY CYCLER SET [Concomitant]

REACTIONS (2)
  - Cardio-respiratory arrest [None]
  - Procedural complication [None]
